FAERS Safety Report 8553439-7 (Version None)
Quarter: 2012Q3

REPORT INFORMATION
  Report Type: 
  Country: None (occurrence: None)
  Receive Date: 20120731
  Receipt Date: 20120726
  Transmission Date: 20120928
  Serious: Yes (Death)
  Sender: FDA-Public Use
  Company Number: GB-ROCHE-1093953

PATIENT
  Sex: Male
  Weight: 69.961 kg

DRUGS (4)
  1. VENTOLIN [Concomitant]
     Dates: end: 20120207
  2. BUDESONIDE [Concomitant]
     Dates: end: 20120207
  3. RANIBIZUMAB [Suspect]
     Indication: AGE-RELATED MACULAR DEGENERATION
     Dosage: LAST DOSE PRIOR TO SAE:21/JUN/2012
     Route: 050
     Dates: start: 20120524
  4. LEVOTHYROXINE SODIUM [Concomitant]
     Dates: end: 20120207

REACTIONS (2)
  - CORONARY ARTERY THROMBOSIS [None]
  - MYOCARDIAL INFARCTION [None]
